FAERS Safety Report 21992969 (Version 3)
Quarter: 2023Q1

REPORT INFORMATION
  Report Type: Spontaneous
  Country: US (occurrence: US)
  Receive Date: 20230215
  Receipt Date: 20230222
  Transmission Date: 20230417
  Serious: No
  Sender: FDA-Public Use
  Company Number: US-AMGEN-USASP2023026739

PATIENT
  Age: 73 Year
  Sex: Female

DRUGS (6)
  1. AIMOVIG [Suspect]
     Active Substance: ERENUMAB-AOOE
     Indication: Migraine prophylaxis
     Dosage: 140 MILLIGRAM, QMO
     Route: 058
  2. AIMOVIG [Suspect]
     Active Substance: ERENUMAB-AOOE
     Dosage: 140 MILLIGRAM, QMO
     Route: 058
  3. AIMOVIG [Suspect]
     Active Substance: ERENUMAB-AOOE
     Dosage: 140 MILLIGRAM, QMO
     Route: 058
  4. GABAPENTIN [Concomitant]
     Active Substance: GABAPENTIN
  5. NURTEC ODT [Concomitant]
     Active Substance: RIMEGEPANT SULFATE
     Dosage: UNK UNK, QHS
  6. RIZATRIPTAN [Concomitant]
     Active Substance: RIZATRIPTAN

REACTIONS (3)
  - Migraine [Unknown]
  - Device difficult to use [Unknown]
  - Injection site pain [Unknown]

NARRATIVE: CASE EVENT DATE: 20230208
